FAERS Safety Report 9404371 (Version 3)
Quarter: 2013Q3

REPORT INFORMATION
  Report Type: Spontaneous
  Country: US (occurrence: US)
  Receive Date: 20130717
  Receipt Date: 20130920
  Transmission Date: 20140515
  Serious: Yes (Death, Hospitalization, Other)
  Sender: FDA-Public Use
  Company Number: US-INCYTE CORPORATION-2013IN001514

PATIENT
  Sex: Male

DRUGS (18)
  1. JAKAFI [Suspect]
     Indication: MYELOFIBROSIS
     Dosage: NOT SPECIFIED (STANDARD DOSE)
     Route: 048
  2. JAKAFI [Suspect]
     Dosage: 20 MG, BID
     Route: 048
  3. POTASSIUM CHLORIDE [Concomitant]
  4. FUROSEMIDE [Concomitant]
  5. PREDNISONE [Concomitant]
  6. ALLOPURINOL [Concomitant]
  7. DOCUSATE [Concomitant]
  8. MEGESTROL [Concomitant]
  9. SIMVASTATIN [Concomitant]
  10. OCUVITE [Concomitant]
  11. AMBIEN [Concomitant]
  12. MIRALAX [Concomitant]
  13. NEXIUM [Concomitant]
  14. LEVOTHYROXINE [Concomitant]
  15. ASPIRIN [Concomitant]
     Dosage: 81 MG, UNK
  16. ECOTRIN [Concomitant]
     Dosage: 325 MG, UNK
  17. HYDROXYUREA [Concomitant]
  18. COREG [Concomitant]

REACTIONS (6)
  - Disease progression [Fatal]
  - Splenomegaly [Recovered/Resolved]
  - Splenic rupture [Recovered/Resolved]
  - Haemoglobin decreased [Recovered/Resolved]
  - Thrombocytopenia [Recovered/Resolved]
  - Drug ineffective [Unknown]
